FAERS Safety Report 9802547 (Version 2)
Quarter: 2014Q1

REPORT INFORMATION
  Report Type: Spontaneous
  Country: US (occurrence: US)
  Receive Date: 20140108
  Receipt Date: 20140109
  Transmission Date: 20141002
  Serious: No
  Sender: FDA-Public Use
  Company Number: US-009507513-1401USA001671

PATIENT
  Sex: Male

DRUGS (1)
  1. ASMANEX TWISTHALER [Suspect]
     Dosage: 4 PUFFS IN THE MORNING AND 4 PUFFS IN THE EVENING
     Route: 055

REACTIONS (3)
  - Overdose [Unknown]
  - Product quality issue [Unknown]
  - No adverse event [Unknown]
